FAERS Safety Report 21643530 (Version 1)
Quarter: 2022Q4

REPORT INFORMATION
  Report Type: Report from Study
  Country: US (occurrence: US)
  Receive Date: 20221125
  Receipt Date: 20221125
  Transmission Date: 20230113
  Serious: No
  Sender: FDA-Public Use
  Company Number: US-ABBVIE-4163027

PATIENT
  Sex: Male

DRUGS (5)
  1. HUMIRA [Suspect]
     Active Substance: ADALIMUMAB
     Indication: Psoriasis
     Route: 058
  2. HUMIRA [Suspect]
     Active Substance: ADALIMUMAB
     Indication: Rheumatoid arthritis
  3. Pfizer BioNTech COVID-19 vaccine ( [Concomitant]
     Indication: COVID-19 immunisation
     Dosage: FIRST DOSE ONE IN ONCE
     Route: 030
     Dates: start: 20210401, end: 20210401
  4. Pfizer BioNTech COVID-19 vaccine ( [Concomitant]
     Indication: COVID-19 immunisation
     Dosage: SECOND DOSE ONE IN ONCE
     Route: 030
     Dates: start: 20210422, end: 20210422
  5. Pfizer BioNTech COVID-19 vaccine ( [Concomitant]
     Indication: COVID-19 immunisation
     Dosage: BOOSTER DOSE ONE IN ONCE
     Route: 030
     Dates: start: 20211026, end: 20211026

REACTIONS (1)
  - Musculoskeletal stiffness [Recovering/Resolving]
